FAERS Safety Report 12305006 (Version 1)
Quarter: 2016Q2

REPORT INFORMATION
  Report Type: Spontaneous
  Country: US (occurrence: US)
  Receive Date: 20160426
  Receipt Date: 20160426
  Transmission Date: 20160815
  Serious: Yes (Hospitalization)
  Sender: FDA-Public Use
  Company Number: US-ALKERMES INC.-ALK-2016-001044

PATIENT
  Age: 29 Year
  Sex: Male
  Weight: 87.75 kg

DRUGS (1)
  1. VIVITROL [Suspect]
     Active Substance: NALTREXONE
     Indication: DRUG DEPENDENCE
     Dosage: 380 MG, QD
     Route: 030
     Dates: start: 20160408

REACTIONS (9)
  - Traumatic renal injury [Not Recovered/Not Resolved]
  - Pelvic haematoma [Not Recovered/Not Resolved]
  - Road traffic accident [Recovered/Resolved]
  - Fibula fracture [Not Recovered/Not Resolved]
  - Tibia fracture [Not Recovered/Not Resolved]
  - Fractured sacrum [Not Recovered/Not Resolved]
  - Jaw fracture [Not Recovered/Not Resolved]
  - Pneumoperitoneum [Not Recovered/Not Resolved]
  - Mesenteric haematoma [Not Recovered/Not Resolved]

NARRATIVE: CASE EVENT DATE: 20160415
